FAERS Safety Report 17967495 (Version 1)
Quarter: 2020Q3

REPORT INFORMATION
  Report Type: Spontaneous
  Country: SE (occurrence: SE)
  Receive Date: 20200701
  Receipt Date: 20200701
  Transmission Date: 20201103
  Serious: Yes (Life-Threatening, Hospitalization)
  Sender: FDA-Public Use
  Company Number: SE-TEVA-2020-SE-1792987

PATIENT
  Age: 92 Year
  Sex: Male

DRUGS (7)
  1. KALEORID 750 MG DEPOTTABLETT [Concomitant]
     Dosage: 750 MILLIGRAM
     Dates: start: 20191207
  2. METOPROLOL. [Suspect]
     Active Substance: METOPROLOL
     Indication: CARDIAC FAILURE
     Dosage: 25 MILLIGRAM
     Route: 048
     Dates: start: 20191208, end: 20200519
  3. OPTIMOL [Concomitant]
  4. TIMOSAN [Concomitant]
     Active Substance: TIMOLOL MALEATE
     Dosage: VB
  5. FURIX [Concomitant]
  6. ENALAPRIL ORION 5 MG TABLETT [Concomitant]
     Dosage: 10 MILLIGRAM
     Dates: start: 20180927
  7. FOLACIN [Concomitant]

REACTIONS (2)
  - Psychotic disorder [Recovered/Resolved]
  - Delusion [Recovered/Resolved]

NARRATIVE: CASE EVENT DATE: 20191208
